FAERS Safety Report 4932168-2 (Version None)
Quarter: 2006Q1

REPORT INFORMATION
  Report Type: 
  Country: None (occurrence: None)
  Receive Date: 20060303
  Receipt Date: 20060222
  Transmission Date: 20060701
  Serious: Yes (Other)
  Sender: FDA-Public Use
  Company Number: PHBS2006IT03037

PATIENT
  Age: 70 Year
  Sex: Female

DRUGS (11)
  1. ZOMETA [Suspect]
     Indication: METASTASES TO BONE
     Dosage: 4 MG, UNK
     Route: 042
     Dates: start: 20050601
  2. TRAMADOL HCL [Concomitant]
     Route: 048
  3. LACTULOSE [Concomitant]
  4. ZYLORIC [Concomitant]
     Route: 048
  5. ZOFRAN [Concomitant]
     Route: 048
  6. EFFERALGAN [Concomitant]
     Route: 048
  7. TAXOTERE [Concomitant]
  8. ANTRA [Concomitant]
     Route: 048
  9. GAVISCON [Concomitant]
  10. NORVASC [Concomitant]
     Route: 048
  11. DELTACORTENE [Concomitant]
     Route: 048

REACTIONS (2)
  - OSTEOLYSIS [None]
  - OSTEONECROSIS [None]
